FAERS Safety Report 17100338 (Version 1)
Quarter: 2019Q4

REPORT INFORMATION
  Report Type: Spontaneous
  Country: DE (occurrence: DE)
  Receive Date: 20191202
  Receipt Date: 20191202
  Transmission Date: 20200122
  Serious: Yes (Other)
  Sender: FDA-Public Use
  Company Number: DE-MYLANLABS-2019M1115701

PATIENT
  Age: 44 Year
  Sex: Female
  Weight: 44 kg

DRUGS (1)
  1. ZIPRASIDONE. [Suspect]
     Active Substance: ZIPRASIDONE
     Indication: PRODUCT USED FOR UNKNOWN INDICATION
     Dosage: 20 MG ABENDS
     Route: 048
     Dates: start: 20110414, end: 20181201

REACTIONS (12)
  - Hypophagia [Recovered/Resolved with Sequelae]
  - Drug withdrawal syndrome [Unknown]
  - Gastrointestinal pain [Recovered/Resolved with Sequelae]
  - Abdominal pain upper [Recovered/Resolved with Sequelae]
  - Neuroleptic malignant syndrome [Not Recovered/Not Resolved]
  - Weight decreased [Not Recovered/Not Resolved]
  - Cachexia [Unknown]
  - Diarrhoea [Not Recovered/Not Resolved]
  - Metabolic disorder [Recovered/Resolved with Sequelae]
  - Dyspepsia [Unknown]
  - Adverse reaction [Unknown]
  - Infection susceptibility increased [Not Recovered/Not Resolved]

NARRATIVE: CASE EVENT DATE: 20160316
